FAERS Safety Report 5484534-7 (Version None)
Quarter: 2007Q4

REPORT INFORMATION
  Report Type: 
  Country: None (occurrence: None)
  Receive Date: 20071012
  Receipt Date: 20071002
  Transmission Date: 20080405
  Serious: Yes (Life-Threatening)
  Sender: FDA-Public Use
  Company Number: SE-PFIZER INC-2007077646

PATIENT
  Sex: Female
  Weight: 73 kg

DRUGS (5)
  1. SU-011,248 [Suspect]
     Indication: BREAST CANCER
     Route: 048
     Dates: start: 20070124, end: 20070917
  2. DOCETAXEL [Suspect]
     Indication: BREAST CANCER
     Route: 042
     Dates: start: 20070123, end: 20070808
  3. LOPERAMID [Concomitant]
     Indication: DIARRHOEA
     Route: 048
  4. ZOVIRAX [Concomitant]
     Indication: GENITAL HERPES
     Route: 048
  5. PARACETAMOL [Concomitant]
     Indication: PAIN
     Route: 048

REACTIONS (2)
  - JAUNDICE [None]
  - SOMNOLENCE [None]
